FAERS Safety Report 5138742-5 (Version None)
Quarter: 2006Q4

REPORT INFORMATION
  Report Type: 
  Country: None (occurrence: None)
  Receive Date: 20061030
  Receipt Date: 20061020
  Transmission Date: 20070319
  Serious: Yes (Hospitalization)
  Sender: FDA-Public Use
  Company Number: US-ROCHE-468163

PATIENT
  Age: 83 Year
  Sex: Female
  Weight: 73.9 kg

DRUGS (4)
  1. DEMADEX [Suspect]
     Indication: HYPERTENSION
     Route: 048
     Dates: start: 19960615
  2. DEMADEX [Suspect]
     Route: 048
     Dates: start: 20030615
  3. DEMADEX [Suspect]
     Route: 048
  4. TOPROL-XL [Concomitant]
     Indication: HYPERTENSION
     Route: 048

REACTIONS (2)
  - CEREBROVASCULAR ACCIDENT [None]
  - MYOCARDIAL INFARCTION [None]
